FAERS Safety Report 5040398-7 (Version None)
Quarter: 2006Q2

REPORT INFORMATION
  Report Type: 
  Country: None (occurrence: None)
  Receive Date: 20060630
  Receipt Date: 20060626
  Transmission Date: 20061013
  Serious: Yes (Other)
  Sender: FDA-Public Use
  Company Number: US-GLAXOSMITHKLINE-A0610339A

PATIENT
  Age: 47 Year
  Sex: Female

DRUGS (7)
  1. ESKALITH CR [Suspect]
     Indication: BIPOLAR I DISORDER
     Dosage: 450MG PER DAY
     Route: 048
  2. LITHIUM CARBONATE [Suspect]
     Indication: BIPOLAR I DISORDER
     Dosage: 300MG SEE DOSAGE TEXT
     Route: 048
  3. ESKALITH [Concomitant]
     Indication: BIPOLAR I DISORDER
     Route: 048
     Dates: start: 20051101
  4. NEXIUM [Concomitant]
  5. DETROL LA [Concomitant]
  6. ESTROGENS SOL/INJ [Concomitant]
  7. KLONOPIN [Concomitant]

REACTIONS (3)
  - DEPRESSION [None]
  - HYPOTHYROIDISM [None]
  - THINKING ABNORMAL [None]
